FAERS Safety Report 24962824 (Version 1)
Quarter: 2025Q1

REPORT INFORMATION
  Report Type: Spontaneous
  Country: ES (occurrence: ES)
  Receive Date: 20250213
  Receipt Date: 20250213
  Transmission Date: 20250409
  Serious: Yes (Other)
  Sender: ABBVIE
  Company Number: ES-ABBVIE-6124488

PATIENT
  Sex: Female

DRUGS (1)
  1. BOTOX [Suspect]
     Active Substance: ONABOTULINUMTOXINA
     Indication: Bladder disorder
     Route: 065
     Dates: start: 20240923, end: 20240924

REACTIONS (7)
  - Urinary tract obstruction [Unknown]
  - Pollakiuria [Unknown]
  - Loss of personal independence in daily activities [Unknown]
  - Gait disturbance [Unknown]
  - Pain in extremity [Unknown]
  - Blood urine [Unknown]
  - Urine output decreased [Unknown]

NARRATIVE: CASE EVENT DATE: 20240101
